FAERS Safety Report 22622821 (Version 1)
Quarter: 2023Q2

REPORT INFORMATION
  Report Type: Spontaneous
  Country: US (occurrence: None)
  Receive Date: 20230621
  Receipt Date: 20230621
  Transmission Date: 20230722
  Serious: No
  Sender: FDA-Public Use
  Company Number: US-ARIS GLOBAL-VER202301-000060

PATIENT
  Sex: Female

DRUGS (1)
  1. NYSTATIN [Suspect]
     Active Substance: NYSTATIN
     Indication: Candida infection
     Dosage: UNKNOWN
     Route: 048
     Dates: start: 202301, end: 202301

REACTIONS (5)
  - Tongue disorder [Unknown]
  - Oral discomfort [Unknown]
  - Oral pain [Unknown]
  - Oral mucosal erythema [Unknown]
  - Therapy cessation [Unknown]

NARRATIVE: CASE EVENT DATE: 20230101
